FAERS Safety Report 12624400 (Version 2)
Quarter: 2016Q4

REPORT INFORMATION
  Report Type: Spontaneous
  Country: US (occurrence: US)
  Receive Date: 20160805
  Receipt Date: 20161125
  Transmission Date: 20170207
  Serious: Yes (Hospitalization, Other)
  Sender: FDA-Public Use
  Company Number: US-ASTRAZENECA-2016SE82926

PATIENT
  Age: 832 Month
  Sex: Female
  Weight: 56.7 kg

DRUGS (5)
  1. FASLODEX [Suspect]
     Active Substance: FULVESTRANT
     Indication: METASTASES TO LIVER
     Dosage: ONCE A MONTH INJECTED IN BUTTOCK
     Route: 030
  2. IBRANCE [Suspect]
     Active Substance: PALBOCICLIB
     Indication: METASTASES TO LIVER
     Route: 048
     Dates: start: 20160603, end: 20160607
  3. IBRANCE [Suspect]
     Active Substance: PALBOCICLIB
     Indication: METASTASES TO LIVER
     Route: 048
     Dates: start: 20160627, end: 20160630
  4. IBRANCE [Suspect]
     Active Substance: PALBOCICLIB
     Indication: METASTASES TO LIVER
     Route: 048
     Dates: start: 20160623
  5. IBRANCE [Suspect]
     Active Substance: PALBOCICLIB
     Indication: METASTASES TO LIVER
     Dosage: 1 -10 MG 2 X DAY
     Route: 048
     Dates: start: 201609

REACTIONS (7)
  - Malaise [Recovered/Resolved]
  - Asthenia [Not Recovered/Not Resolved]
  - Drug dose omission [Recovered/Resolved]
  - Renal impairment [Recovering/Resolving]
  - Feeling abnormal [Recovered/Resolved]
  - Hypersomnia [Not Recovered/Not Resolved]
  - Malignant neoplasm progression [Unknown]

NARRATIVE: CASE EVENT DATE: 201606
